FAERS Safety Report 19189813 (Version 1)
Quarter: 2021Q2

REPORT INFORMATION
  Report Type: Spontaneous
  Country: US (occurrence: US)
  Receive Date: 20210428
  Receipt Date: 20210428
  Transmission Date: 20210717
  Serious: Yes (Other)
  Sender: FDA-Public Use
  Company Number: US-PFIZER INC-2021358976

PATIENT

DRUGS (1)
  1. XANAX [Suspect]
     Active Substance: ALPRAZOLAM
     Indication: SLEEP DISORDER
     Dosage: UNK
     Dates: start: 2014

REACTIONS (4)
  - Drug effective for unapproved indication [Unknown]
  - Road traffic accident [Unknown]
  - Back injury [Unknown]
  - Off label use [Unknown]
